FAERS Safety Report 5203514-X (Version None)
Quarter: 2007Q1

REPORT INFORMATION
  Report Type: 
  Country: None (occurrence: None)
  Receive Date: 20070105
  Receipt Date: 20061222
  Transmission Date: 20070707
  Serious: Yes (Hospitalization)
  Sender: FDA-Public Use
  Company Number: SPVI-2006-02265

PATIENT
  Age: 11 Year
  Sex: Female

DRUGS (1)
  1. MESALAMINE [Suspect]
     Indication: COLITIS ULCERATIVE
     Dosage: 500 MG, 3X/DAY; TID

REACTIONS (12)
  - ABDOMINAL PAIN [None]
  - ASTHENIA [None]
  - DIARRHOEA [None]
  - DRUG INEFFECTIVE [None]
  - FATIGUE [None]
  - FOCAL GLOMERULOSCLEROSIS [None]
  - IRON DEFICIENCY ANAEMIA [None]
  - NAUSEA [None]
  - NEPHRITIS INTERSTITIAL [None]
  - PYELONEPHRITIS [None]
  - VOMITING [None]
  - WEIGHT DECREASED [None]
